FAERS Safety Report 6909441-1 (Version None)
Quarter: 2010Q3

REPORT INFORMATION
  Report Type: 
  Country: None (occurrence: None)
  Receive Date: 20100805
  Receipt Date: 20100727
  Transmission Date: 20110219
  Serious: Yes (Hospitalization)
  Sender: FDA-Public Use
  Company Number: US-CELGENEUS-163-21880-10072726

PATIENT
  Sex: Male

DRUGS (2)
  1. REVLIMID [Suspect]
     Route: 048
     Dates: start: 20091222, end: 20100304
  2. REVLIMID [Suspect]
     Route: 048
     Dates: start: 20100722

REACTIONS (1)
  - CENTRAL NERVOUS SYSTEM LESION [None]
